FAERS Safety Report 17430862 (Version 3)
Quarter: 2020Q1

REPORT INFORMATION
  Report Type: Spontaneous
  Country: GB (occurrence: GB)
  Receive Date: 20200218
  Receipt Date: 20200224
  Transmission Date: 20200409
  Serious: Yes (Disabling)
  Sender: FDA-Public Use
  Company Number: GB-IPSEN BIOPHARMACEUTICALS, INC.-2020-03044

PATIENT
  Age: 54 Year
  Sex: Female
  Weight: 50 kg

DRUGS (2)
  1. DYSPORT [Suspect]
     Active Substance: ABOBOTULINUMTOXINA
     Indication: CEREBRAL PALSY
     Dosage: 1500 IU
     Route: 030
     Dates: start: 20171112, end: 20171112
  2. PHYLLOCONTIN [Concomitant]
     Active Substance: AMINOPHYLLINE
     Indication: ASTHMA

REACTIONS (23)
  - Depression [Not Recovered/Not Resolved]
  - Muscle fatigue [Not Recovered/Not Resolved]
  - Anxiety [Not Recovered/Not Resolved]
  - Injection site bruising [Not Recovered/Not Resolved]
  - Fatigue [Not Recovered/Not Resolved]
  - Eye injury [Unknown]
  - Diplopia [Not Recovered/Not Resolved]
  - Aphonia [Unknown]
  - Feeling abnormal [Unknown]
  - Confusional state [Not Recovered/Not Resolved]
  - Blood creatine phosphokinase increased [Unknown]
  - Oral candidiasis [Not Recovered/Not Resolved]
  - Dysphonia [Unknown]
  - Dysphagia [Not Recovered/Not Resolved]
  - Muscular weakness [Not Recovered/Not Resolved]
  - Vision blurred [Unknown]
  - Contusion [Not Recovered/Not Resolved]
  - Choking [Unknown]
  - Abnormal loss of weight [Not Recovered/Not Resolved]
  - Feeding disorder [Not Recovered/Not Resolved]
  - Toxicity to various agents [Unknown]
  - Panic attack [Unknown]
  - Dyspnoea [Unknown]

NARRATIVE: CASE EVENT DATE: 20190905
